FAERS Safety Report 14659608 (Version 2)
Quarter: 2018Q2

REPORT INFORMATION
  Report Type: Spontaneous
  Country: US (occurrence: US)
  Receive Date: 20180320
  Receipt Date: 20180503
  Transmission Date: 20180711
  Serious: No
  Sender: FDA-Public Use
  Company Number: US-PFIZER INC-2018110476

PATIENT
  Age: 26 Year
  Sex: Female
  Weight: 55 kg

DRUGS (5)
  1. BOSULIF [Suspect]
     Active Substance: BOSUTINIB MONOHYDRATE
     Indication: CHRONIC MYELOID LEUKAEMIA
     Dosage: 15 MG, DAILY
  2. BOSULIF [Suspect]
     Active Substance: BOSUTINIB MONOHYDRATE
     Dosage: 30 MG, DAILY
  3. ADVAIR HFA [Concomitant]
     Active Substance: FLUTICASONE PROPIONATE\SALMETEROL XINAFOATE
     Indication: ASTHMA
     Dosage: UNK, 2X/DAY [FLUTICASONE PROPIONATE-250, SALMETEROL XINAFOATE-50]
  4. BOSULIF [Suspect]
     Active Substance: BOSUTINIB MONOHYDRATE
     Dosage: 30 MG, 1X/DAY
     Route: 048
     Dates: start: 201705
  5. ALBUTEROL. [Concomitant]
     Active Substance: ALBUTEROL
     Indication: ASTHMA
     Dosage: UNK, AS NEEDED
     Route: 055

REACTIONS (6)
  - Fatigue [Not Recovered/Not Resolved]
  - Malaise [Unknown]
  - Neuropathy peripheral [Unknown]
  - Neoplasm progression [Unknown]
  - Arthritis [Unknown]
  - Nausea [Recovered/Resolved]

NARRATIVE: CASE EVENT DATE: 201705
